FAERS Safety Report 20428192 (Version 1)
Quarter: 2022Q1

REPORT INFORMATION
  Report Type: Report from Study
  Country: CO (occurrence: CO)
  Receive Date: 20220204
  Receipt Date: 20220204
  Transmission Date: 20220423
  Serious: Yes (Hospitalization)
  Sender: FDA-Public Use
  Company Number: CO-SA-SAC20220128000396

PATIENT

DRUGS (2)
  1. PRALUENT [Suspect]
     Active Substance: ALIROCUMAB
     Indication: Arteriosclerosis
     Dosage: 75 MILLIGRAM, QOW
     Route: 058
     Dates: start: 20190527
  2. PRALUENT [Suspect]
     Active Substance: ALIROCUMAB
     Indication: Type V hyperlipidaemia

REACTIONS (1)
  - COVID-19 [Unknown]
